FAERS Safety Report 7183570-2 (Version None)
Quarter: 2010Q4

REPORT INFORMATION
  Report Type: 
  Country: None (occurrence: None)
  Receive Date: 20101220
  Receipt Date: 20101220
  Transmission Date: 20110411
  Serious: Yes (Other)
  Sender: FDA-Public Use
  Company Number: None

PATIENT
  Age: 55 Year
  Sex: Male
  Weight: 62.1428 kg

DRUGS (1)
  1. FAZACLO ODT [Suspect]
     Dosage: 200MG BID PO
     Route: 048
     Dates: start: 20060213

REACTIONS (1)
  - WHITE BLOOD CELL COUNT INCREASED [None]
